FAERS Safety Report 14251247 (Version 1)
Quarter: 2017Q4

REPORT INFORMATION
  Report Type: Spontaneous
  Country: CN (occurrence: CN)
  Receive Date: 20171205
  Receipt Date: 20171205
  Transmission Date: 20180321
  Serious: Yes (Other)
  Sender: FDA-Public Use
  Company Number: CN-PFIZER INC-2017514341

PATIENT
  Age: 69 Year
  Sex: Male
  Weight: 83 kg

DRUGS (7)
  1. LIPOSOMAL DOXORUBICIN HYDROCHLORIDE [Suspect]
     Active Substance: DOXORUBICIN HYDROCHLORIDE
     Dosage: 30 MG, 1X/DAY
     Route: 041
     Dates: start: 20170812, end: 20170812
  2. VINDESINE SULPHATE [Suspect]
     Active Substance: VINDESINE SULFATE
     Dosage: 4 MG, 1X/DAY
     Route: 041
     Dates: start: 20170812, end: 20170812
  3. PREDNISONE ACETATE [Suspect]
     Active Substance: PREDNISONE ACETATE
     Dosage: 40 MG, 1X/DAY
     Route: 048
     Dates: start: 20170812, end: 20170812
  4. DEXAMETHASONE SODIUM PHOSPHATE. [Suspect]
     Active Substance: DEXAMETHASONE SODIUM PHOSPHATE
     Dosage: 5 MG, 1X/DAY
     Route: 037
     Dates: start: 20170811, end: 20170811
  5. ENDOXAN [Suspect]
     Active Substance: CYCLOPHOSPHAMIDE
     Dosage: 0.9 G, 1X/DAY
     Route: 041
     Dates: start: 20170812, end: 20170812
  6. METHOTREXATE. [Suspect]
     Active Substance: METHOTREXATE
     Dosage: 10 MG, 1X/DAY
     Route: 037
     Dates: start: 20170811, end: 20170811
  7. CYTOSAR [Suspect]
     Active Substance: CYTARABINE
     Dosage: 0.05 G, 1X/DAY
     Route: 037
     Dates: start: 20170811, end: 20170811

REACTIONS (3)
  - Pyrexia [Recovering/Resolving]
  - Bone marrow failure [Recovered/Resolved]
  - Traumatic lung injury [Recovering/Resolving]

NARRATIVE: CASE EVENT DATE: 20170812
